FAERS Safety Report 11419964 (Version 1)
Quarter: 2015Q3

REPORT INFORMATION
  Report Type: Spontaneous
  Country: US (occurrence: US)
  Receive Date: 20150826
  Receipt Date: 20150826
  Transmission Date: 20151125
  Serious: Yes (Other)
  Sender: FDA-Public Use
  Company Number: US-SA-2015SA127778

PATIENT
  Age: 47 Year
  Sex: Male

DRUGS (1)
  1. NASACORT ALLERGY 24HR [Suspect]
     Active Substance: TRIAMCINOLONE ACETONIDE
     Indication: HYPERSENSITIVITY
     Dosage: 2 SPRAYS/ NOSTRIL/DAY
     Route: 045

REACTIONS (5)
  - Pain [Recovered/Resolved]
  - Dysgeusia [Recovered/Resolved]
  - Exophthalmos [Recovered/Resolved]
  - Visual impairment [Recovered/Resolved]
  - Nasal congestion [Recovered/Resolved]
